FAERS Safety Report 7954176 (Version 2)
Quarter: 2012Q4

REPORT INFORMATION
  Report Type: 
  Country: US (occurrence: US)
  Receive Date: 20110520
  Receipt Date: 20121008
  Transmission Date: 20130627
  Serious: Yes (Other)
  Sender: FDA-Public Use
  Company Number: PHHY2011US40391

PATIENT
  Sex: Female

DRUGS (5)
  1. VIVELLE [Suspect]
     Dosage: 0.05 mg, UNK
     Route: 062
     Dates: start: 1997
  2. VIVELLE [Suspect]
     Dosage: 0.0375 mg, UNK
     Route: 062
  3. VIVELLE DOT [Suspect]
     Dosage: 0.05 mg, QW2
     Route: 062
  4. VIVELLE DOT [Suspect]
     Dosage: 0.037 mg, UNK
     Route: 062
  5. VIVELLE DOT [Suspect]
     Dosage: 0.025 mg, UNK
     Route: 062

REACTIONS (1)
  - Deafness [Not Recovered/Not Resolved]
